FAERS Safety Report 23885888 (Version 1)
Quarter: 2024Q2

REPORT INFORMATION
  Report Type: Spontaneous
  Country: US (occurrence: US)
  Receive Date: 20240522
  Receipt Date: 20240522
  Transmission Date: 20240716
  Serious: Yes (Other)
  Sender: FDA-Public Use
  Company Number: US-ABBVIE-5767879

PATIENT
  Sex: Female

DRUGS (1)
  1. BOTOX [Suspect]
     Active Substance: ONABOTULINUMTOXINA
     Indication: Product used for unknown indication
     Dosage: TIME INTERVAL: AS NECESSARY
     Route: 030

REACTIONS (11)
  - Spinal nerve stimulator implantation [Unknown]
  - Hypoaesthesia [Unknown]
  - Back pain [Unknown]
  - Insomnia [Unknown]
  - Hernia [Unknown]
  - Pain [Unknown]
  - Nerve injury [Unknown]
  - Groin pain [Unknown]
  - Gait disturbance [Unknown]
  - Migraine [Unknown]
  - Neurological procedural complication [Unknown]
